FAERS Safety Report 7618762-9 (Version None)
Quarter: 2011Q3

REPORT INFORMATION
  Report Type: 
  Country: None (occurrence: None)
  Receive Date: 20110718
  Receipt Date: 20080821
  Transmission Date: 20111222
  Serious: Yes (Other)
  Sender: FDA-Public Use
  Company Number: US-BAYER-200834376NA

PATIENT
  Sex: Male
  Weight: 81.633 kg

DRUGS (28)
  1. MAGNEVIST [Suspect]
     Indication: NUCLEAR MAGNETIC RESONANCE IMAGING
     Dosage: 15 ML, ONCE
     Route: 042
     Dates: start: 20060111, end: 20060111
  2. ZESTORETIC [Concomitant]
  3. LISINOPRIL [Concomitant]
  4. HYDROCHLOROTHIAZIDE [Concomitant]
  5. LISINOPRIL AND HYDROCHLOROTHIAZIDE [Concomitant]
  6. AVAPRO [Concomitant]
  7. MAGNEVIST [Suspect]
     Dosage: UNK
     Dates: start: 20060217, end: 20060217
  8. AMLODIPINE [Concomitant]
  9. GLYBURIDE [Concomitant]
  10. JANUVIA [Concomitant]
  11. METOPROLOL TARTRATE [Concomitant]
  12. MAGNEVIST [Suspect]
     Dosage: 18 ML, ONCE
     Route: 042
     Dates: start: 20060119, end: 20060119
  13. METFORMIN HCL [Concomitant]
  14. LEVEMIR [Concomitant]
  15. PRAVASTATIN [Concomitant]
  16. WARFARIN SODIUM [Concomitant]
  17. IRON [CITRIC ACID,FERROUS SULFATE] [Concomitant]
  18. AVANDAMET [Concomitant]
  19. AVANDIA [Concomitant]
  20. FUROSEMIDE [Concomitant]
  21. NOVOLOG [Concomitant]
  22. GLUCOPHAGE [Concomitant]
  23. GLUCOTROL [Concomitant]
  24. NORVASC [Concomitant]
  25. NEBIVOLOL HCL [Concomitant]
  26. CELEBREX [Concomitant]
  27. PREDNISONE [Concomitant]
  28. ACTOS [Concomitant]

REACTIONS (15)
  - SKIN FIBROSIS [None]
  - INJURY [None]
  - EMOTIONAL DISTRESS [None]
  - NEPHROGENIC SYSTEMIC FIBROSIS [None]
  - GAIT DISTURBANCE [None]
  - FIBROSIS [None]
  - PAIN [None]
  - ARTHRALGIA [None]
  - MOBILITY DECREASED [None]
  - GENERAL PHYSICAL HEALTH DETERIORATION [None]
  - SWELLING [None]
  - ANXIETY [None]
  - SKIN DISCOLOURATION [None]
  - MUSCULOSKELETAL PAIN [None]
  - SKIN EXFOLIATION [None]
